FAERS Safety Report 21034782 (Version 2)
Quarter: 2022Q3

REPORT INFORMATION
  Report Type: Spontaneous
  Country: US (occurrence: US)
  Receive Date: 20220701
  Receipt Date: 20220808
  Transmission Date: 20221027
  Serious: No
  Sender: FDA-Public Use
  Company Number: US-PFIZER INC-202200908112

PATIENT
  Age: 68 Year
  Sex: Female

DRUGS (1)
  1. IBRANCE [Suspect]
     Active Substance: PALBOCICLIB
     Indication: Breast cancer
     Dosage: 125 MG, CYCLIC(1 TABLET EVERY DAY FOR 21 DAYS ON AND 7 DAYS OFF )
     Dates: start: 20210823

REACTIONS (2)
  - Skin depigmentation [Not Recovered/Not Resolved]
  - Rash macular [Not Recovered/Not Resolved]
